FAERS Safety Report 17550109 (Version 3)
Quarter: 2020Q2

REPORT INFORMATION
  Report Type: Spontaneous
  Country: TR (occurrence: TR)
  Receive Date: 20200317
  Receipt Date: 20200506
  Transmission Date: 20200713
  Serious: No
  Sender: FDA-Public Use
  Company Number: TR-PFIZER INC-2020112212

PATIENT
  Age: 63 Year
  Sex: Female

DRUGS (1)
  1. METHOTREXATE SODIUM. [Suspect]
     Active Substance: METHOTREXATE SODIUM
     Dosage: UNK

REACTIONS (1)
  - Drug ineffective [Unknown]
